FAERS Safety Report 21995287 (Version 1)
Quarter: 2023Q1

REPORT INFORMATION
  Report Type: Spontaneous
  Country: US (occurrence: None)
  Receive Date: 20230214
  Receipt Date: 20230214
  Transmission Date: 20230418
  Serious: Yes (Disabling)
  Sender: FDA-Public Use
  Company Number: None

PATIENT
  Age: 26 Year
  Sex: Female
  Weight: 47.25 kg

DRUGS (12)
  1. DULOXETINE HYDROCHLORIDE DELAYED RELEASE [Suspect]
     Active Substance: DULOXETINE HYDROCHLORIDE
     Indication: Arthralgia
     Route: 048
     Dates: start: 20220221, end: 20230210
  2. DULOXETINE HYDROCHLORIDE DELAYED RELEASE [Suspect]
     Active Substance: DULOXETINE HYDROCHLORIDE
     Indication: Myalgia
  3. DULOXETINE HYDROCHLORIDE DELAYED RELEASE [Suspect]
     Active Substance: DULOXETINE HYDROCHLORIDE
     Indication: Fatigue
  4. DULOXETINE HYDROCHLORIDE DELAYED RELEASE [Suspect]
     Active Substance: DULOXETINE HYDROCHLORIDE
     Indication: Malaise
  5. LEVONORGESTREL [Concomitant]
     Active Substance: LEVONORGESTREL
  6. ETHINYL ESTRADIOL [Concomitant]
     Active Substance: ETHINYL ESTRADIOL
  7. Spring Valley Rapid Release CoQ10 [Concomitant]
  8. FOCUS Relief Plus [Concomitant]
  9. OMEGA-3 ACIDS [Concomitant]
     Active Substance: OMEGA-3 FATTY ACIDS
  10. VITAMIN D3 [Concomitant]
     Active Substance: CHOLECALCIFEROL
  11. Nature Made Magnesium Citrate [Concomitant]
  12. Ovaltine [Concomitant]

REACTIONS (21)
  - Dizziness [None]
  - Nausea [None]
  - Vomiting [None]
  - Constipation [None]
  - Fatigue [None]
  - Lethargy [None]
  - Insomnia [None]
  - Pollakiuria [None]
  - Inadequate analgesia [None]
  - Depression [None]
  - Suicidal ideation [None]
  - Crying [None]
  - Depressed mood [None]
  - Thinking abnormal [None]
  - Therapy cessation [None]
  - Intentional product use issue [None]
  - Withdrawal syndrome [None]
  - Electric shock sensation [None]
  - Balance disorder [None]
  - Visual agnosia [None]
  - Wrong technique in product usage process [None]

NARRATIVE: CASE EVENT DATE: 20230210
